FAERS Safety Report 6772154-3 (Version None)
Quarter: 2010Q2

REPORT INFORMATION
  Report Type: 
  Country: None (occurrence: None)
  Receive Date: 20100616
  Receipt Date: 20100608
  Transmission Date: 20101027
  Serious: Yes (Death, Other)
  Sender: FDA-Public Use
  Company Number: US-AMGEN-KDC417129

PATIENT

DRUGS (4)
  1. ENBREL [Suspect]
     Route: 064
     Dates: start: 20091010
  2. TYLENOL [Concomitant]
     Route: 064
     Dates: start: 20091010, end: 20100227
  3. PRENATAL VITAMINS [Concomitant]
     Route: 064
     Dates: start: 20091210, end: 20100329
  4. INFLUENZA A (H1N1) MONOVALENT VACCINE [Concomitant]
     Route: 064
     Dates: start: 20091230, end: 20091230

REACTIONS (4)
  - DEATH [None]
  - DEATH NEONATAL [None]
  - MATERNAL DRUGS AFFECTING FOETUS [None]
  - PREMATURE BABY [None]
